FAERS Safety Report 9872812 (Version 3)
Quarter: 2015Q1

REPORT INFORMATION
  Report Type: Other
  Country: US (occurrence: US)
  Receive Date: 20140206
  Receipt Date: 20150203
  Transmission Date: 20150721
  Serious: No
  Sender: FDA-Public Use
  Company Number: US-ACORDA-ACO_100414_2013

PATIENT
  Age: 58 Year
  Sex: Male
  Weight: 63.49 kg

DRUGS (5)
  1. COPAXONE [Concomitant]
     Active Substance: GLATIRAMER ACETATE
     Indication: MULTIPLE SCLEROSIS
     Dosage: 20 MG, UNK
  2. VERAPAMIL [Concomitant]
     Active Substance: VERAPAMIL HYDROCHLORIDE
     Indication: PRODUCT USED FOR UNKNOWN INDICATION
     Dosage: UNK
  3. AMPYRA [Suspect]
     Active Substance: DALFAMPRIDINE
     Indication: GAIT DISTURBANCE
     Dosage: 10 MG, Q 12 HRS
     Route: 048
     Dates: start: 201309, end: 20131030
  4. AMPYRA [Suspect]
     Active Substance: DALFAMPRIDINE
     Dosage: 10 MG, BID
     Route: 048
     Dates: start: 20131114
  5. ADVIL [Concomitant]
     Active Substance: IBUPROFEN
     Indication: MOOD ALTERED
     Dosage: UNK

REACTIONS (6)
  - Urinary retention [Unknown]
  - Hernia [Not Recovered/Not Resolved]
  - Flank pain [Not Recovered/Not Resolved]
  - Therapeutic response unexpected [Unknown]
  - Pollakiuria [Not Recovered/Not Resolved]
  - Prostatitis [Not Recovered/Not Resolved]

NARRATIVE: CASE EVENT DATE: 2013
